FAERS Safety Report 8397783-5 (Version None)
Quarter: 2012Q2

REPORT INFORMATION
  Report Type: 
  Country: None (occurrence: None)
  Receive Date: 20120524
  Receipt Date: 20120509
  Transmission Date: 20120825
  Serious: Yes (Disabling)
  Sender: FDA-Public Use
  Company Number: NPIL/SEV/H/2012/38

PATIENT
  Age: 57 Year
  Sex: Female

DRUGS (10)
  1. FENTANYL [Concomitant]
  2. MIDAZOLAM [Concomitant]
  3. PROPOFOL [Concomitant]
  4. ROCURONIUM BROMIDE [Concomitant]
  5. ONDANSETRON [Concomitant]
  6. SEVOFLURANE [Suspect]
     Indication: ANAESTHESIA PROCEDURE
     Dosage: 2.5%, ONCE, INHALATION
     Route: 055
  7. SEVOFLURANE [Suspect]
     Indication: CHOLECYSTECTOMY
     Dosage: 2.5%, ONCE, INHALATION
     Route: 055
  8. MORPHINE [Concomitant]
  9. SCOPOLAMINE [Concomitant]
  10. DEXAMETHASONE [Concomitant]

REACTIONS (2)
  - DYSGEUSIA [None]
  - ANOSMIA [None]
